FAERS Safety Report 6615734-8 (Version None)
Quarter: 2010Q1

REPORT INFORMATION
  Report Type: 
  Country: None (occurrence: None)
  Receive Date: 20100305
  Receipt Date: 20100302
  Transmission Date: 20100710
  Serious: Yes (Death, Other)
  Sender: FDA-Public Use
  Company Number: JP-BAYER-200914105BYL

PATIENT
  Age: 54 Year
  Sex: Male
  Weight: 80 kg

DRUGS (9)
  1. NEXAVAR [Suspect]
     Indication: HEPATIC NEOPLASM MALIGNANT
     Dosage: TOTAL DAILY DOSE: 800 MG  UNIT DOSE: 200 MG
     Route: 048
     Dates: start: 20090810, end: 20090828
  2. URSO 250 [Concomitant]
     Dosage: UNIT DOSE: 100 MG
     Route: 048
     Dates: end: 20091018
  3. GLYCYRON [Concomitant]
     Dosage: TOTAL DAILY DOSE: 6 DF  UNIT DOSE: 1 DF
     Route: 048
     Dates: end: 20091018
  4. LIVACT [Concomitant]
     Dosage: TOTAL DAILY DOSE: 3 DF  UNIT DOSE: 1 DF
     Route: 048
     Dates: end: 20091018
  5. LASIX [Concomitant]
     Dosage: UNIT DOSE: 20 MG
     Route: 048
     Dates: end: 20091018
  6. ALDACTONE [Concomitant]
     Dosage: TOTAL DAILY DOSE: 50 MG  UNIT DOSE: 25 MG
     Route: 048
     Dates: end: 20091018
  7. GASTER D [Concomitant]
     Dosage: TOTAL DAILY DOSE: 2 DF  UNIT DOSE: 1 DF
     Route: 048
     Dates: end: 20091018
  8. SHAKUYAKU-KANZO-TO [Concomitant]
     Dosage: TOTAL DAILY DOSE: 7.5 G  UNIT DOSE: 2.5 G
     Route: 048
     Dates: end: 20091018
  9. AMINOLEBAN EN [Concomitant]
     Dosage: TOTAL DAILY DOSE: 50 G  UNIT DOSE: 50 G
     Route: 048
     Dates: end: 20091018

REACTIONS (5)
  - ASCITES [None]
  - HEPATIC FAILURE [None]
  - HEPATIC FUNCTION ABNORMAL [None]
  - MALAISE [None]
  - PALMAR-PLANTAR ERYTHRODYSAESTHESIA SYNDROME [None]
